FAERS Safety Report 26100403 (Version 2)
Quarter: 2025Q4

REPORT INFORMATION
  Report Type: Spontaneous
  Country: IN (occurrence: IN)
  Receive Date: 20251128
  Receipt Date: 20251211
  Transmission Date: 20260118
  Serious: Yes (Other)
  Sender: ALKEM
  Company Number: IN-ALKEM LABORATORIES LIMITED-IN-ALKEM-2025-12766

PATIENT
  Age: 19 Year
  Sex: Male
  Weight: 60 kg

DRUGS (4)
  1. LIDOCAINE [Suspect]
     Active Substance: LIDOCAINE
     Indication: Dental local anaesthesia
     Dosage: 7.5 MILLILITER (A TOTAL OF 7.5 MILLILITRE OF 2 PERCENT LIGNOCAINE WITH ADRENALINE)
  2. EPINEPHRINE [Concomitant]
     Active Substance: EPINEPHRINE
     Indication: Dental local anaesthesia
     Dosage: UNK (TOTAL OF 7.5 ML OF 2 PERCENT LIGNOCAINE WITH ADRENALINE)
     Route: 065
  3. AMOXICILLIN\CLAVULANIC ACID [Concomitant]
     Active Substance: AMOXICILLIN\CLAVULANIC ACID
     Indication: Antibiotic prophylaxis
     Dosage: 625 MILLIGRAM, BID
     Route: 065
  4. DICLOFENAC [Concomitant]
     Active Substance: DICLOFENAC
     Indication: Analgesic therapy
     Dosage: 75 MILLIGRAM
     Route: 065

REACTIONS (2)
  - Unresponsive to stimuli [Recovered/Resolved]
  - Local anaesthetic systemic toxicity [Recovered/Resolved]
